FAERS Safety Report 16458855 (Version 1)
Quarter: 2019Q2

REPORT INFORMATION
  Report Type: Spontaneous
  Country: US (occurrence: US)
  Receive Date: 20190620
  Receipt Date: 20190620
  Transmission Date: 20190711
  Serious: No
  Sender: FDA-Public Use
  Company Number: US-THERAPEUTICSMD-2019TMD01071

PATIENT
  Age: 50 Year
  Sex: Female
  Weight: 70.3 kg

DRUGS (2)
  1. IMVEXXY [Suspect]
     Active Substance: ESTRADIOL
     Indication: VULVOVAGINAL DRYNESS
     Dosage: UNK, 2X/WEEK
     Route: 067
     Dates: start: 201904, end: 20190423
  2. UNSPECIFIED SUPPLEMENTS [Concomitant]

REACTIONS (5)
  - Off label use [Recovered/Resolved]
  - Endometriosis [Recovered/Resolved]
  - Pelvic pain [Recovered/Resolved]
  - Uterine leiomyoma [Recovered/Resolved]
  - Pelvic haemorrhage [Recovered/Resolved]

NARRATIVE: CASE EVENT DATE: 201904
